FAERS Safety Report 7580025-8 (Version None)
Quarter: 2011Q2

REPORT INFORMATION
  Report Type: 
  Country: None (occurrence: None)
  Receive Date: 20110629
  Receipt Date: 20110617
  Transmission Date: 20111010
  Serious: Yes (Death)
  Sender: FDA-Public Use
  Company Number: IN-SANOFI-AVENTIS-2011SA036714

PATIENT
  Age: 65 Year
  Sex: Female
  Weight: 60 kg

DRUGS (4)
  1. CLOPIDOGREL [Concomitant]
     Route: 048
  2. BETALOC [Concomitant]
     Route: 048
  3. MULTAQ [Suspect]
     Indication: ATRIAL FIBRILLATION
     Route: 048
  4. ATORVASTATIN [Concomitant]
     Route: 048

REACTIONS (1)
  - SUDDEN CARDIAC DEATH [None]
